FAERS Safety Report 6212332-5 (Version None)
Quarter: 2009Q2

REPORT INFORMATION
  Report Type: 
  Country: None (occurrence: None)
  Receive Date: 20090529
  Receipt Date: 20090514
  Transmission Date: 20091009
  Serious: Yes (Hospitalization)
  Sender: FDA-Public Use
  Company Number: 2009001475

PATIENT
  Age: 59 Year
  Sex: Female

DRUGS (4)
  1. ERLOTINIB (ERLOTINIB) (TABLET) (ERLOTINIB) [Suspect]
     Indication: OVARIAN CANCER
     Dosage: 100 MG, QD, ORAL
     Route: 048
     Dates: start: 20070328
  2. METOPROLOL (METOPROLOL) [Concomitant]
  3. NIFEDIPINE [Concomitant]
  4. MINOCYCLINE HCL [Concomitant]

REACTIONS (1)
  - PTERYGIUM [None]
